FAERS Safety Report 12617726 (Version 1)
Quarter: 2016Q3

REPORT INFORMATION
  Report Type: Spontaneous
  Country: US (occurrence: US)
  Receive Date: 20160803
  Receipt Date: 20160803
  Transmission Date: 20161109
  Serious: No
  Sender: FDA-Public Use
  Company Number: US-PFIZER INC-2016343284

PATIENT
  Age: 53 Year
  Sex: Female
  Weight: 76.65 kg

DRUGS (2)
  1. TYLENOL [Suspect]
     Active Substance: ACETAMINOPHEN
     Dosage: UNK
  2. IBUPROFEN. [Suspect]
     Active Substance: IBUPROFEN
     Dosage: UNK

REACTIONS (15)
  - Blood pressure increased [Unknown]
  - Viral infection [Unknown]
  - Oropharyngeal pain [Unknown]
  - Cough [Unknown]
  - Nausea [Unknown]
  - Chills [Unknown]
  - Decreased appetite [Unknown]
  - Pain [Unknown]
  - Pyrexia [Unknown]
  - Laryngitis [Unknown]
  - Dysphagia [Unknown]
  - Dizziness [Unknown]
  - Gait disturbance [Unknown]
  - Headache [Unknown]
  - Dyspnoea [Unknown]
